FAERS Safety Report 8223655-2 (Version None)
Quarter: 2012Q1

REPORT INFORMATION
  Report Type: 
  Country: None (occurrence: None)
  Receive Date: 20120316
  Receipt Date: 20120229
  Transmission Date: 20120608
  Serious: Yes (Life-Threatening)
  Sender: FDA-Public Use
  Company Number: FK201200491

PATIENT
  Age: 70 Year
  Sex: Male

DRUGS (5)
  1. PROPOFOL [Suspect]
     Indication: ANAESTHESIA PROCEDURE
     Dates: start: 20111219, end: 20111219
  2. CISATRACURIUM (CISATRACURIUM) (CISATRACURIUM) [Concomitant]
  3. FENTANYL [Concomitant]
  4. PARACETAMOL (PARACETAMOL) (PARACETAMOL) [Concomitant]
  5. OXAZEPAM (OXAZEPAM) (OXAZEPAM) [Concomitant]

REACTIONS (2)
  - ANAESTHETIC COMPLICATION [None]
  - ANAPHYLACTIC REACTION [None]
